FAERS Safety Report 6185899-3 (Version None)
Quarter: 2009Q2

REPORT INFORMATION
  Report Type: 
  Country: None (occurrence: None)
  Receive Date: 20090511
  Receipt Date: 20090504
  Transmission Date: 20091009
  Serious: Yes (Life-Threatening, Hospitalization)
  Sender: FDA-Public Use
  Company Number: D0061476A

PATIENT
  Sex: Female

DRUGS (2)
  1. ARIXTRA [Suspect]
     Dosage: 7.5MG PER DAY
     Route: 058
     Dates: start: 20090101, end: 20090101
  2. THROMBOLYTIC AGENT [Concomitant]
     Indication: THROMBOSIS PROPHYLAXIS
     Route: 058
     Dates: start: 20090301, end: 20090101

REACTIONS (3)
  - SPLENECTOMY [None]
  - SPLENIC HAEMORRHAGE [None]
  - THROMBOPHLEBITIS SUPERFICIAL [None]
